FAERS Safety Report 11932574 (Version 1)
Quarter: 2016Q1

REPORT INFORMATION
  Report Type: Spontaneous
  Country: TR (occurrence: TR)
  Receive Date: 20160120
  Receipt Date: 20160120
  Transmission Date: 20160526
  Serious: Yes (Other)
  Sender: FDA-Public Use
  Company Number: TR-VALIDUS PHARMACEUTICALS LLC-TR-2015VAL000363

PATIENT
  Age: 25 Year
  Sex: Female

DRUGS (1)
  1. LOPRESSOR [Suspect]
     Active Substance: METOPROLOL TARTRATE
     Indication: SUPRAVENTRICULAR TACHYCARDIA
     Dosage: 50 MG, QD

REACTIONS (3)
  - Presyncope [Unknown]
  - Maternal exposure during pregnancy [Unknown]
  - Supraventricular tachycardia [Unknown]
